FAERS Safety Report 4603920-8 (Version None)
Quarter: 2005Q1

REPORT INFORMATION
  Report Type: 
  Country: None (occurrence: None)
  Receive Date: 20050310
  Receipt Date: 20050125
  Transmission Date: 20050727
  Serious: Yes (Hospitalization)
  Sender: FDA-Public Use
  Company Number: US-GLAXOSMITHKLINE-A0542199A

PATIENT
  Age: 44 Year
  Sex: Female

DRUGS (5)
  1. ANCEF [Suspect]
     Indication: PROPHYLAXIS
     Dosage: 2G TWICE PER DAY
     Route: 042
     Dates: start: 20020211, end: 20020211
  2. PHENERGAN [Concomitant]
  3. DARVOCET [Concomitant]
  4. LORTAB [Concomitant]
  5. HEPARIN [Concomitant]

REACTIONS (4)
  - ABDOMINAL INFECTION [None]
  - NEUTROPENIA [None]
  - WHITE BLOOD CELL COUNT ABNORMAL [None]
  - WHITE BLOOD CELL COUNT DECREASED [None]
